FAERS Safety Report 10263162 (Version 2)
Quarter: 2014Q2

REPORT INFORMATION
  Report Type: Report from Study
  Country: US (occurrence: US)
  Receive Date: 20140626
  Receipt Date: 20140626
  Transmission Date: 20141212
  Serious: Yes (Death)
  Sender: FDA-Public Use
  Company Number: US-MYLANLABS-2014S1003885

PATIENT
  Age: 75 Year
  Sex: Male

DRUGS (3)
  1. CLOZAPINE TABLETS [Suspect]
     Indication: DEMENTIA
     Route: 048
     Dates: end: 20131204
  2. CLOZAPINE TABLETS [Suspect]
     Indication: SCHIZOPHRENIA
     Route: 048
     Dates: end: 20131204
  3. CARBIDOPA + LEVODOPA [Concomitant]
     Dosage: 10MG/100MG

REACTIONS (2)
  - Neoplasm malignant [Fatal]
  - Parkinson^s disease [Fatal]
